FAERS Safety Report 26148482 (Version 1)
Quarter: 2025Q4

REPORT INFORMATION
  Report Type: Spontaneous
  Country: EU (occurrence: EU)
  Receive Date: 20251212
  Receipt Date: 20251212
  Transmission Date: 20260118
  Serious: Yes (Other)
  Sender: AUROBINDO
  Company Number: EU-009507513-2348449

PATIENT
  Age: 69 Year
  Sex: Female

DRUGS (2)
  1. CAPECITABINE [Suspect]
     Active Substance: CAPECITABINE
     Indication: Paraganglion neoplasm
     Dosage: UNK
     Route: 065
  2. TEMOZOLOMIDE [Suspect]
     Active Substance: TEMOZOLOMIDE
     Indication: Paraganglion neoplasm
     Dosage: UNK
     Route: 065

REACTIONS (2)
  - Therapy partial responder [Unknown]
  - Product use in unapproved indication [Unknown]
